FAERS Safety Report 18748184 (Version 2)
Quarter: 2021Q1

REPORT INFORMATION
  Report Type: Spontaneous
  Country: US (occurrence: US)
  Receive Date: 20210116
  Receipt Date: 20210129
  Transmission Date: 20210419
  Serious: Yes (Other)
  Sender: FDA-Public Use
  Company Number: US-AUROBINDO-AUR-APL-2021-001647

PATIENT
  Age: 94 Year
  Sex: Female

DRUGS (5)
  1. QUETIAPINE. [Suspect]
     Active Substance: QUETIAPINE
     Dosage: 6.25 MILLIGRAM, AS NECESSARY (6.25 MG PRN DAILY)
     Route: 065
  2. QUETIAPINE. [Suspect]
     Active Substance: QUETIAPINE
     Indication: AGITATION
     Dosage: 50 MILLIGRAM, ONCE A DAY (QUETIAPINE WAS DOUBLED TWICE)
     Route: 065
  3. QUETIAPINE. [Suspect]
     Active Substance: QUETIAPINE
     Dosage: 25 MILLIGRAM, AS NECESSARY (25 MG PRN DAILY)
     Route: 065
  4. QUETIAPINE. [Suspect]
     Active Substance: QUETIAPINE
     Dosage: 25 MILLIGRAM, ONCE A DAY (QUETIAPINE WAS DOUBLED TWICE)
     Route: 065
  5. QUETIAPINE. [Suspect]
     Active Substance: QUETIAPINE
     Dosage: 12.5 MILLIGRAM, ONCE A DAY (NIGHTLY)
     Route: 065

REACTIONS (3)
  - Fall [Unknown]
  - Hip fracture [Unknown]
  - Product prescribing issue [Unknown]
